FAERS Safety Report 9869246 (Version 1)
Quarter: 2014Q1

REPORT INFORMATION
  Report Type: Spontaneous
  Country: JP (occurrence: JP)
  Receive Date: 20140205
  Receipt Date: 20140205
  Transmission Date: 20141002
  Serious: Yes (Other)
  Sender: FDA-Public Use
  Company Number: PHHY2014JP012934

PATIENT
  Age: 79 Year
  Sex: Male
  Weight: 60 kg

DRUGS (9)
  1. ZOMETA [Suspect]
     Indication: METASTASES TO BONE
     Dosage: 4 MG/PER ADMINISTRATION
     Route: 041
     Dates: start: 201009, end: 201310
  2. ZOMETA [Suspect]
     Dosage: 3.3 MG/PER ADMINISTRATION
     Route: 041
     Dates: start: 201311
  3. PREDONINE [Concomitant]
     Dosage: UNK UKN, UNK
     Route: 048
  4. WARFARIN [Concomitant]
     Dosage: UNK UKN, UNK
     Route: 048
  5. TAKEPRON [Concomitant]
     Dosage: UNK UKN, UNK
     Route: 048
  6. MOBIC [Concomitant]
     Dosage: UNK UKN, UNK
     Route: 048
  7. URIEF [Concomitant]
     Dosage: UNK UKN, UNK
     Route: 048
  8. UBRETID [Concomitant]
     Dosage: UNK UKN, UNK
     Route: 048
  9. LOBU [Concomitant]
     Dosage: UNK UKN, UNK
     Route: 048

REACTIONS (3)
  - Osteonecrosis of jaw [Recovering/Resolving]
  - Erythema [Unknown]
  - Purulent discharge [Unknown]
